FAERS Safety Report 5932545-7 (Version None)
Quarter: 2008Q4

REPORT INFORMATION
  Report Type: 
  Country: None (occurrence: None)
  Receive Date: 20081028
  Receipt Date: 20081021
  Transmission Date: 20090506
  Serious: Yes (Other)
  Sender: FDA-Public Use
  Company Number: US-BAYER-200836323NA

PATIENT
  Age: 24 Year
  Sex: Female

DRUGS (1)
  1. MIRENA [Suspect]
     Indication: CONTRACEPTION
     Route: 015
     Dates: start: 20060918

REACTIONS (5)
  - AMENORRHOEA [None]
  - IUD MIGRATION [None]
  - METRORRHAGIA [None]
  - OVARIAN CYST [None]
  - PELVIC PAIN [None]
